FAERS Safety Report 14343478 (Version 26)
Quarter: 2018Q4

REPORT INFORMATION
  Report Type: Spontaneous
  Country: PL (occurrence: PL)
  Receive Date: 20180102
  Receipt Date: 20181022
  Transmission Date: 20190204
  Serious: Yes (Hospitalization, Other)
  Sender: FDA-Public Use
  Company Number: PL-PFIZER INC-2017555224

PATIENT
  Age: 85 Year
  Sex: Female

DRUGS (9)
  1. DONEPEZIL HCL [Interacting]
     Active Substance: DONEPEZIL HYDROCHLORIDE
     Dosage: 10 MG, DAILY IN THE MORNING (1 IN 1 D) FREQUENCY: 10 DAYS
     Route: 048
  2. MILK THISTLE [Interacting]
     Active Substance: DIETARY SUPPLEMENT\HERBALS\MILK THISTLE
     Dosage: 140 MG, 3X/DAY
  3. MIANSERINE [Interacting]
     Active Substance: MIANSERIN HYDROCHLORIDE
     Dosage: 30 MG, 1X/DAY AT BEDTIME (1 IN 1 D)
  4. SERTRALINE HCL [Suspect]
     Active Substance: SERTRALINE HYDROCHLORIDE
     Dosage: 100 MG, 1X/DAY  IN THE MORNING (1 IN 1 D)
  5. QUETIAPINE FUMARATE. [Interacting]
     Active Substance: QUETIAPINE FUMARATE
     Dosage: 50 MG, 1X/DAY AT BEDTIME (1 IN 1 D)
  6. ATORVASTATIN CALCIUM. [Interacting]
     Active Substance: ATORVASTATIN CALCIUM
     Dosage: 20 MG, 1X/DAY AT BEDTIME (1 IN 1 D)
  7. CARVEDILOL. [Interacting]
     Active Substance: CARVEDILOL
     Dosage: 6.25 MG, 1X/DAY IN THE MORNING (1 IN 1 D)
  8. TORASEMIDE [Interacting]
     Active Substance: TORSEMIDE
     Dosage: 5 MG, 1X/DAY IN THE MORNING (1 IN 1 D)
  9. ZOFENOPRIL [Interacting]
     Active Substance: ZOFENOPRIL
     Dosage: 7.5 MG, 1X/DAY IN THE MORNING (1 IN 1 D)

REACTIONS (13)
  - Hypokalaemia [Recovered/Resolved]
  - Liver disorder [Recovered/Resolved]
  - Bradycardia [Recovered/Resolved]
  - Somnolence [Recovered/Resolved]
  - Loss of consciousness [Recovered/Resolved]
  - Hyperhidrosis [Recovered/Resolved]
  - Liver function test increased [Recovering/Resolving]
  - Nausea [Recovered/Resolved]
  - Diarrhoea [Recovered/Resolved]
  - Dry mouth [Recovered/Resolved]
  - Drug interaction [Recovered/Resolved]
  - Abdominal pain [Recovered/Resolved]
  - Muscle spasms [Recovered/Resolved]
